FAERS Safety Report 13666672 (Version 1)
Quarter: 2017Q2

REPORT INFORMATION
  Report Type: Spontaneous
  Country: US (occurrence: US)
  Receive Date: 20170619
  Receipt Date: 20170619
  Transmission Date: 20170830
  Serious: No
  Sender: FDA-Public Use
  Company Number: US-ROCHE-1490881

PATIENT
  Sex: Female

DRUGS (1)
  1. XELODA [Suspect]
     Active Substance: CAPECITABINE
     Indication: COLON CANCER
     Dosage: 1500MG AM AND PM FOR 7 DAYS ON AND 7 DAYS OFF
     Route: 065
     Dates: start: 20141001

REACTIONS (9)
  - Pain in extremity [Unknown]
  - Skin atrophy [Unknown]
  - Poor peripheral circulation [Unknown]
  - Neuropathy peripheral [Unknown]
  - Dehydration [Unknown]
  - Palmar-plantar erythrodysaesthesia syndrome [Unknown]
  - Skin hyperpigmentation [Unknown]
  - Skin discolouration [Unknown]
  - Erythema [Unknown]
